FAERS Safety Report 9815614 (Version 5)
Quarter: 2014Q2

REPORT INFORMATION
  Report Type: Spontaneous
  Country: CA (occurrence: None)
  Receive Date: 20140110
  Receipt Date: 20140407
  Transmission Date: 20141212
  Serious: Yes (Hospitalization, Other)
  Sender: FDA-Public Use
  Company Number: CA-013973

PATIENT
  Age: 73 Year
  Sex: Male

DRUGS (10)
  1. FIRMAGON [Suspect]
     Indication: PROSTATE CANCER
     Dosage: (240 MG 1X SUBCUTANEOUS)
     Route: 058
     Dates: start: 20131031, end: 20131031
  2. BICALUTAMIDE [Concomitant]
  3. METFORMIN [Concomitant]
  4. PLAVIX [Concomitant]
  5. VITAMIN B 12 /00056201/ [Concomitant]
  6. VITAMIN D SUPPORT [Concomitant]
  7. BISACODYL [Concomitant]
  8. OXYCODONE [Concomitant]
  9. HYDRAZINOPHTHALAZINE DERIVATIVES AND DIURETIC [Concomitant]
  10. CLEMASTIN FUMARAT [Concomitant]

REACTIONS (17)
  - Haemoglobin decreased [None]
  - Malaise [None]
  - Tenderness [None]
  - Mass [None]
  - Injection site haemorrhage [None]
  - Bone pain [None]
  - Abdominal tenderness [None]
  - Musculoskeletal chest pain [None]
  - Injection site erythema [None]
  - Injection site mass [None]
  - Stress urinary incontinence [None]
  - Constipation [None]
  - Prostate cancer metastatic [None]
  - Malignant neoplasm progression [None]
  - Renal failure [None]
  - Haematuria [None]
  - Anaemia [None]
